FAERS Safety Report 10570955 (Version 2)
Quarter: 2014Q4

REPORT INFORMATION
  Report Type: Spontaneous
  Country: US (occurrence: US)
  Receive Date: 20141107
  Receipt Date: 20141107
  Transmission Date: 20150529
  Serious: Yes (Death)
  Sender: FDA-Public Use
  Company Number: US-BAYER-201017244GPV

PATIENT
  Age: 76 Year
  Sex: Male

DRUGS (2)
  1. PARACETAMOL + DIPHENHYDRAMINE [Suspect]
     Active Substance: ACETAMINOPHEN\DIPHENHYDRAMINE
  2. ETHANOL [Suspect]
     Active Substance: ALCOHOL

REACTIONS (1)
  - Toxicity to various agents [Fatal]
